FAERS Safety Report 9707481 (Version 2)
Quarter: 2013Q4

REPORT INFORMATION
  Report Type: Spontaneous
  Country: PH (occurrence: PH)
  Receive Date: 20131125
  Receipt Date: 20131125
  Transmission Date: 20140711
  Serious: Yes (Life-Threatening, Hospitalization, Other)
  Sender: FDA-Public Use
  Company Number: PHHY2013PH132763

PATIENT
  Sex: Male
  Weight: 62.1 kg

DRUGS (10)
  1. TEGRETOL [Suspect]
     Indication: TRIGEMINAL NEURALGIA
     Dosage: UNK UKN, UNK
     Route: 048
  2. PREDNISOLONE [Suspect]
     Dosage: UNK UKN, UNK
  3. MECOBALAMIN [Suspect]
     Dosage: UNK UKN, UNK
  4. NORVASC [Suspect]
     Dosage: UNK UKN, UNK
  5. ITERAX [Suspect]
     Dosage: UNK UKN, UNK
  6. VIRLIX [Suspect]
     Dosage: UNK UKN, UNK
  7. ZANTAC [Suspect]
     Dosage: UNK UKN, UNK
  8. DIPROGENTA [Suspect]
     Dosage: UNK UKN, UNK
  9. BACTROBAN /NET/ [Suspect]
     Dosage: UNK UKN, UNK
  10. BUROWS SOLUTION [Suspect]
     Dosage: UNK UKN, UNK

REACTIONS (5)
  - Stevens-Johnson syndrome [Recovering/Resolving]
  - Superinfection [Unknown]
  - Urinary tract infection [Unknown]
  - Abscess limb [Unknown]
  - Pneumonia [Unknown]
